FAERS Safety Report 13930209 (Version 1)
Quarter: 2017Q3

REPORT INFORMATION
  Report Type: Spontaneous
  Country: IN (occurrence: IN)
  Receive Date: 20170901
  Receipt Date: 20170901
  Transmission Date: 20171127
  Serious: Yes (Death, Congenital Anomaly)
  Sender: FDA-Public Use
  Company Number: IN-CIPLA (EU) LIMITED-E2B_00002559

PATIENT

DRUGS (1)
  1. WARFARIN [Suspect]
     Active Substance: WARFARIN
     Dosage: UNK
     Route: 064

REACTIONS (4)
  - Foetal warfarin syndrome [Unknown]
  - Respiratory failure [Fatal]
  - Foetal exposure during pregnancy [Unknown]
  - Low birth weight baby [Unknown]
